FAERS Safety Report 5317825-0 (Version None)
Quarter: 2007Q2

REPORT INFORMATION
  Report Type: 
  Country: None (occurrence: None)
  Receive Date: 20070430
  Receipt Date: 20070420
  Transmission Date: 20071010
  Serious: Yes (Hospitalization)
  Sender: FDA-Public Use
  Company Number: 6032458

PATIENT
  Age: 86 Year
  Sex: Female

DRUGS (11)
  1. BISOPROLOL FUMARATE [Suspect]
     Indication: ESSENTIAL HYPERTENSION
     Dosage: 1.25 MG (1.25 MG, 1 D), ORAL
     Route: 048
     Dates: start: 20061201, end: 20070215
  2. CITALOPRAM HYDROBROMIDE [Suspect]
     Indication: DRUG USE FOR UNKNOWN INDICATION
     Dosage: 75 MG (75 MG, 1 D), ORAL
     Route: 048
     Dates: start: 20070109, end: 20070123
  3. PREVISCAN (TABLET) (FLUINDIONE) [Suspect]
     Indication: DRUG USE FOR UNKNOWN INDICATION
     Dosage: ORAL
     Route: 048
  4. ALLOPURINOL [Concomitant]
  5. MOPRAL (GASTRO-RESISTANT CAPSULE) (OMEPRAZOLE) [Concomitant]
  6. HYPERIUM (TABLET) (RILMENIDINE) [Concomitant]
  7. APROVEL (TABLET) (IRBESARTAN) [Concomitant]
  8. SPECIAFOLDINE (TABLET) (FOLIC ACID) [Concomitant]
  9. LASIX [Concomitant]
  10. MORPHINE SULFATE [Concomitant]
  11. PROTELOS (GRANULES FOR ORAL SOLUTION) (STRONTIUM) [Concomitant]

REACTIONS (3)
  - ACUTE GENERALISED EXANTHEMATOUS PUSTULOSIS [None]
  - DERMATITIS EXFOLIATIVE [None]
  - FAILURE TO THRIVE [None]
